FAERS Safety Report 8114962 (Version 6)
Quarter: 2013Q1

REPORT INFORMATION
  Report Type: Spontaneous
  Country: US (occurrence: US)
  Receive Date: 20110831
  Receipt Date: 20130320
  Transmission Date: 20140127
  Serious: Yes (Hospitalization, Other)
  Sender: FDA-Public Use
  Company Number: US-ROCHE-798807

PATIENT
  Age: 34 Year
  Sex: Female
  Weight: 59.02 kg

DRUGS (1)
  1. ACCUTANE [Suspect]
     Indication: ACNE
     Dosage: DOSE: 20 MG BID
     Route: 048
     Dates: start: 19960918, end: 19970429

REACTIONS (15)
  - Colitis ulcerative [Unknown]
  - Intestinal haemorrhage [Unknown]
  - Inflammatory bowel disease [Unknown]
  - Depression [Not Recovered/Not Resolved]
  - Injury [Unknown]
  - Blood cholesterol increased [Unknown]
  - Chapped lips [Unknown]
  - Dry skin [Unknown]
  - Blood triglycerides increased [Unknown]
  - Alopecia [Unknown]
  - Xerosis [Unknown]
  - Arthralgia [Unknown]
  - Cheilitis [Unknown]
  - Irritable bowel syndrome [Unknown]
  - Arthritis [Unknown]
